FAERS Safety Report 21937831 (Version 1)
Quarter: 2023Q1

REPORT INFORMATION
  Report Type: Spontaneous
  Country: NL (occurrence: NL)
  Receive Date: 20230201
  Receipt Date: 20230201
  Transmission Date: 20230417
  Serious: Yes (Hospitalization, Other)
  Sender: FDA-Public Use
  Company Number: NL-GLAXOSMITHKLINE-NL2023GSK004263

PATIENT
  Age: 79 Year
  Sex: Female

DRUGS (12)
  1. MIRTAZAPINE [Suspect]
     Active Substance: MIRTAZAPINE
     Indication: Product used for unknown indication
     Dosage: INCREASED DOSE
  2. MIRTAZAPINE [Suspect]
     Active Substance: MIRTAZAPINE
     Dosage: DECREASED DOSE
  3. MIRTAZAPINE [Suspect]
     Active Substance: MIRTAZAPINE
     Dosage: UNK
  4. RIVOTRIL [Suspect]
     Active Substance: CLONAZEPAM
     Indication: Product used for unknown indication
     Dosage: UNK
  5. OLANZAPINE [Suspect]
     Active Substance: OLANZAPINE
     Indication: Product used for unknown indication
     Dosage: UNK
  6. OLANZAPINE [Suspect]
     Active Substance: OLANZAPINE
     Dosage: INCREASED DOSE
  7. OLANZAPINE [Suspect]
     Active Substance: OLANZAPINE
     Dosage: DECREASED DOSE
  8. BUPROPION HYDROCHLORIDE [Suspect]
     Active Substance: BUPROPION HYDROCHLORIDE
     Indication: Bipolar disorder
     Dosage: UNK
  9. BUPROPION HYDROCHLORIDE [Suspect]
     Active Substance: BUPROPION HYDROCHLORIDE
     Dosage: INCREASED DOSE
  10. BUPROPION HYDROCHLORIDE [Suspect]
     Active Substance: BUPROPION HYDROCHLORIDE
     Dosage: DECREASED DOSE
  11. CARVEDILOL [Concomitant]
     Active Substance: CARVEDILOL
     Indication: Product used for unknown indication
     Dosage: DECREASED DOSE
  12. CARVEDILOL [Concomitant]
     Active Substance: CARVEDILOL
     Dosage: UNK

REACTIONS (6)
  - Multiple drug therapy [Recovering/Resolving]
  - Syncope [Recovered/Resolved]
  - Somnolence [Recovering/Resolving]
  - Gait disturbance [Recovering/Resolving]
  - Hyponatraemia [Recovering/Resolving]
  - Bradycardia [Recovering/Resolving]
